FAERS Safety Report 4574842-6 (Version None)
Quarter: 2005Q1

REPORT INFORMATION
  Report Type: 
  Country: None (occurrence: None)
  Receive Date: 20050208
  Receipt Date: 20040714
  Transmission Date: 20050727
  Serious: No
  Sender: FDA-Public Use
  Company Number: US-GLAXOSMITHKLINE-A0518235A

PATIENT
  Age: 44 Year
  Sex: Female

DRUGS (3)
  1. PAXIL CR [Suspect]
     Dosage: 25MG CYCLIC
     Route: 048
     Dates: start: 20040501
  2. BECONASE AQ [Concomitant]
  3. CLARITIN PRN [Concomitant]

REACTIONS (3)
  - DYSGEUSIA [None]
  - FATIGUE [None]
  - INSOMNIA [None]
